FAERS Safety Report 19110436 (Version 1)
Quarter: 2021Q2

REPORT INFORMATION
  Report Type: Report from Study
  Country: US (occurrence: US)
  Receive Date: 20210409
  Receipt Date: 20210409
  Transmission Date: 20210717
  Serious: Yes (Other)
  Sender: FDA-Public Use
  Company Number: US-TAKEDA-2020TUS003330

PATIENT
  Sex: Female

DRUGS (2)
  1. PONATINIB [Suspect]
     Active Substance: PONATINIB
     Indication: CHRONIC MYELOID LEUKAEMIA
     Dosage: 15 MILLIGRAM, QD
     Route: 048
     Dates: start: 201911, end: 202001
  2. PONATINIB [Suspect]
     Active Substance: PONATINIB
     Dosage: 15 MILLIGRAM, 3/WEEK
     Route: 048

REACTIONS (7)
  - Vision blurred [Unknown]
  - Myalgia [Recovered/Resolved]
  - Cough [Unknown]
  - Bone pain [Recovering/Resolving]
  - Immunosuppression [Unknown]
  - Off label use [Unknown]
  - Vomiting [Unknown]
